FAERS Safety Report 4806584-3 (Version None)
Quarter: 2005Q4

REPORT INFORMATION
  Report Type: 
  Country: None (occurrence: None)
  Receive Date: 20051019
  Receipt Date: 20051011
  Transmission Date: 20060501
  Serious: Yes (Other)
  Sender: FDA-Public Use
  Company Number: 2004032126

PATIENT
  Age: 75 Year
  Sex: Male
  Weight: 111.1313 kg

DRUGS (11)
  1. TIKOSYN [Suspect]
     Indication: ATRIAL FIBRILLATION
     Dosage: 500 MCG (250 MCG, 2 IN 1 D), ORAL
     Route: 048
     Dates: start: 20020917
  2. TIKOSYN [Suspect]
     Indication: HEART RATE IRREGULAR
     Dosage: 500 MCG (250 MCG, 2 IN 1 D), ORAL
     Route: 048
     Dates: start: 20020917
  3. SPIRONOLACTONE [Suspect]
     Indication: ILL-DEFINED DISORDER
  4. COREG [Concomitant]
  5. ALDACTONE [Concomitant]
  6. VALSARTAN [Concomitant]
  7. WARFARIN SODIUM [Concomitant]
  8. LASIX [Concomitant]
  9. DIGOXIN [Concomitant]
  10. ALLOPURINOL [Concomitant]
  11. MAGNESIUM (MAGNESIUM) [Concomitant]

REACTIONS (12)
  - ARTHROPATHY [None]
  - ATRIAL FIBRILLATION [None]
  - BLOOD CREATININE INCREASED [None]
  - BLOOD POTASSIUM INCREASED [None]
  - EJECTION FRACTION ABNORMAL [None]
  - INCORRECT DOSE ADMINISTERED [None]
  - MEDICATION ERROR [None]
  - MENISCUS LESION [None]
  - PHARMACEUTICAL PRODUCT COMPLAINT [None]
  - RENAL CYST [None]
  - RENAL IMPAIRMENT [None]
  - TREATMENT NONCOMPLIANCE [None]
